FAERS Safety Report 16365241 (Version 4)
Quarter: 2019Q3

REPORT INFORMATION
  Report Type: Spontaneous
  Country: AU (occurrence: AU)
  Receive Date: 20190529
  Receipt Date: 20190704
  Transmission Date: 20191004
  Serious: Yes (Death, Hospitalization, Other)
  Sender: FDA-Public Use
  Company Number: AU-AMGEN-AUSSP2019084518

PATIENT
  Age: 75 Year
  Sex: Male
  Weight: 83 kg

DRUGS (3)
  1. KYPROLIS [Suspect]
     Active Substance: CARFILZOMIB
     Dosage: 104 MILLIGRAM (56 MG/M2), UNK
     Route: 042
     Dates: start: 201905, end: 20190520
  2. KYPROLIS [Suspect]
     Active Substance: CARFILZOMIB
     Indication: PLASMA CELL MYELOMA
     Dosage: 37 MILLIGRAM (20 MG/M2), UNK
     Route: 042
     Dates: start: 20190513
  3. DEXAMETHASONE. [Concomitant]
     Active Substance: DEXAMETHASONE
     Indication: PLASMA CELL MYELOMA
     Dosage: 20 MILLIGRAM, ^APP^
     Dates: start: 20190513, end: 20190522

REACTIONS (9)
  - Pulmonary oedema [Unknown]
  - Cardiac failure [Unknown]
  - Respiratory failure [Unknown]
  - Plasma cell myeloma [Unknown]
  - Malaise [Unknown]
  - Sepsis [Unknown]
  - Death [Fatal]
  - Blood product transfusion dependent [Unknown]
  - Condition aggravated [Unknown]

NARRATIVE: CASE EVENT DATE: 201905
